FAERS Safety Report 5483761-2 (Version None)
Quarter: 2007Q4

REPORT INFORMATION
  Report Type: 
  Country: None (occurrence: None)
  Receive Date: 20071012
  Receipt Date: 20071012
  Transmission Date: 20080405
  Serious: Yes (Life-Threatening, Hospitalization)
  Sender: FDA-Public Use
  Company Number: A0674781A

PATIENT
  Age: 62 Year
  Weight: 96 kg

DRUGS (2)
  1. AVANDIA [Suspect]
     Dosage: 2MG UNKNOWN
     Route: 048
  2. ANTIHYPERTENSIVE (UNSPECIFIED) [Concomitant]

REACTIONS (1)
  - MYOCARDIAL INFARCTION [None]
